FAERS Safety Report 4745392-9 (Version None)
Quarter: 2005Q3

REPORT INFORMATION
  Report Type: 
  Country: None (occurrence: None)
  Receive Date: 20050815
  Receipt Date: 20050803
  Transmission Date: 20060218
  Serious: Yes (Hospitalization)
  Sender: FDA-Public Use
  Company Number: 5667

PATIENT
  Age: 36 Year
  Sex: Female

DRUGS (4)
  1. MORPHINE SULFATE [Suspect]
     Indication: PAIN
     Dosage: 2-3 ML P.O.
     Route: 048
     Dates: start: 20041201
  2. ZOFRAN (IM) [Concomitant]
  3. ANZEMET (ORAL) [Concomitant]
  4. PHENERGAN SUPPOSITORY [Concomitant]

REACTIONS (3)
  - NAUSEA [None]
  - PHARMACEUTICAL PRODUCT COMPLAINT [None]
  - VOMITING [None]
